FAERS Safety Report 10440983 (Version 1)
Quarter: 2014Q3

REPORT INFORMATION
  Report Type: Spontaneous
  Country: US (occurrence: None)
  Receive Date: 20140908
  Receipt Date: 20140908
  Transmission Date: 20150326
  Serious: Yes (Life-Threatening, Disabling, Other)
  Sender: FDA-Public Use
  Company Number: None

PATIENT
  Age: 58 Year
  Sex: Female
  Weight: 74.84 kg

DRUGS (1)
  1. CORTICO STEROID, NOT SPECIFIED [Suspect]
     Active Substance: UNSPECIFIED INGREDIENT

REACTIONS (18)
  - Lyme disease [None]
  - Simplex virus test positive [None]
  - Aspartate aminotransferase increased [None]
  - Pain [None]
  - Epstein-Barr virus antibody positive [None]
  - Alanine aminotransferase increased [None]
  - Vitamin D decreased [None]
  - Human herpes virus 6 serology positive [None]
  - Mycoplasma test positive [None]
  - Parasite blood test positive [None]
  - Chlamydia test positive [None]
  - Antinuclear antibody positive [None]
  - Back disorder [None]
  - Nuclear magnetic resonance imaging abnormal [None]
  - Muscular weakness [None]
  - Economic problem [None]
  - Cardiac murmur [None]
  - Cardiac valve disease [None]

NARRATIVE: CASE EVENT DATE: 20110624
